FAERS Safety Report 11725791 (Version 1)
Quarter: 2015Q4

REPORT INFORMATION
  Report Type: Spontaneous
  Country: US (occurrence: US)
  Receive Date: 20151110
  Receipt Date: 20151110
  Transmission Date: 20160304
  Serious: No
  Sender: FDA-Public Use
  Company Number: US-ELI_LILLY_AND_COMPANY-US201110002012

PATIENT
  Sex: Female

DRUGS (2)
  1. PAXIL [Concomitant]
     Active Substance: PAROXETINE HYDROCHLORIDE
  2. FORTEO [Suspect]
     Active Substance: TERIPARATIDE
     Dosage: UNK, UNKNOWN

REACTIONS (5)
  - Confusional state [Unknown]
  - Cognitive disorder [Unknown]
  - Amnesia [Unknown]
  - Obsessive-compulsive disorder [Unknown]
  - Sleep disorder [Unknown]
